FAERS Safety Report 7287355-8 (Version None)
Quarter: 2011Q1

REPORT INFORMATION
  Report Type: 
  Country: None (occurrence: None)
  Receive Date: 20110211
  Receipt Date: 20110128
  Transmission Date: 20110831
  Serious: Yes (Hospitalization)
  Sender: FDA-Public Use
  Company Number: US-CELGENEUS-163-21880-10120316

PATIENT
  Sex: Male
  Weight: 77.11 kg

DRUGS (1)
  1. REVLIMID [Suspect]
     Indication: MULTIPLE MYELOMA
     Route: 048
     Dates: start: 20101001, end: 20101101

REACTIONS (3)
  - NAUSEA [None]
  - SECONDARY IMMUNODEFICIENCY [None]
  - COLITIS [None]
